FAERS Safety Report 9568223 (Version 1)
Quarter: 2013Q3

REPORT INFORMATION
  Report Type: Spontaneous
  Country: US (occurrence: US)
  Receive Date: 20130930
  Receipt Date: 20130930
  Transmission Date: 20140515
  Serious: No
  Sender: FDA-Public Use
  Company Number: US-AMGEN-USASP2013053813

PATIENT
  Age: 64 Year
  Sex: Female
  Weight: 104.31 kg

DRUGS (17)
  1. ENBREL [Suspect]
     Indication: PSORIASIS
     Dosage: UNK
     Route: 065
     Dates: end: 201307
  2. CARVEDILOL [Concomitant]
     Dosage: UNK
  3. LISINOPRIL [Concomitant]
     Dosage: UNK
  4. NEXIUM                             /01479302/ [Concomitant]
     Dosage: UNK
  5. ZOCOR [Concomitant]
     Dosage: UNK
  6. GABAPENTIN [Concomitant]
     Dosage: UNK
  7. HYDROXYZINE [Concomitant]
     Dosage: UNK
  8. IRON [Concomitant]
     Dosage: UNK
  9. ASPIRIN [Concomitant]
     Dosage: 325 UNK, UNK
  10. ALBUTEROL                          /00139501/ [Concomitant]
     Dosage: UNK
  11. XOPENEX [Concomitant]
     Dosage: UNK
  12. ADVAIR [Concomitant]
     Dosage: UNK
  13. SPIRIVA [Concomitant]
     Dosage: UNK
  14. METFORMIN [Concomitant]
     Dosage: UNK
  15. LANTUS [Concomitant]
     Dosage: UNK
  16. NOVOLOG [Concomitant]
     Dosage: UNK
  17. CALCIUM +D                         /00944201/ [Concomitant]
     Dosage: UNK

REACTIONS (1)
  - Drug effect decreased [Unknown]
